FAERS Safety Report 16615540 (Version 1)
Quarter: 2019Q3

REPORT INFORMATION
  Report Type: Spontaneous
  Country: US (occurrence: US)
  Receive Date: 20190723
  Receipt Date: 20190723
  Transmission Date: 20191004
  Serious: Yes (Other)
  Sender: FDA-Public Use
  Company Number: US-ABBVIE-19P-163-2845813-00

PATIENT
  Sex: Female

DRUGS (1)
  1. ORILISSA [Suspect]
     Active Substance: ELAGOLIX SODIUM
     Indication: ENDOMETRIOSIS
     Route: 048

REACTIONS (9)
  - Myalgia [Unknown]
  - Fatigue [Unknown]
  - Pelvic pain [Recovering/Resolving]
  - Vaginal haemorrhage [Unknown]
  - Arthralgia [Recovering/Resolving]
  - Weight increased [Unknown]
  - Increased appetite [Unknown]
  - Depression [Unknown]
  - Gastrointestinal pain [Unknown]
